FAERS Safety Report 10010584 (Version 1)
Quarter: 2014Q1

REPORT INFORMATION
  Report Type: Spontaneous
  Country: US (occurrence: None)
  Receive Date: 20140312
  Receipt Date: 20140312
  Transmission Date: 20141002
  Serious: Yes (Hospitalization, Other)
  Sender: FDA-Public Use
  Company Number: None

PATIENT
  Age: 79 Year
  Sex: Male
  Weight: 75.5 kg

DRUGS (8)
  1. ELIQUIS [Suspect]
     Indication: ATRIAL FIBRILLATION
     Dosage: 1 TABLET BID ORAL
     Route: 048
  2. LASIX [Concomitant]
  3. NORCO [Concomitant]
  4. ZESTRIL [Concomitant]
  5. NADOLOL [Concomitant]
  6. NITROGLYCERINE [Concomitant]
  7. ASPIRIN [Concomitant]
  8. LOTRISONE [Concomitant]

REACTIONS (2)
  - Headache [None]
  - Cerebral haemorrhage [None]
